FAERS Safety Report 13051882 (Version 2)
Quarter: 2016Q4

REPORT INFORMATION
  Report Type: Spontaneous
  Country: US (occurrence: US)
  Receive Date: 20161221
  Receipt Date: 20161227
  Transmission Date: 20170207
  Serious: Yes (Hospitalization, Other)
  Sender: FDA-Public Use
  Company Number: US-SA-2016SA228296

PATIENT
  Age: 15 Year
  Sex: Male

DRUGS (10)
  1. EPINEPHRINE. [Suspect]
     Active Substance: EPINEPHRINE
     Indication: STATUS ASTHMATICUS
     Route: 065
  2. MAGNESIUM [Concomitant]
     Active Substance: MAGNESIUM
     Indication: STATUS ASTHMATICUS
     Dosage: CONTINUOUS INFUSION
  3. MILRINONE [Concomitant]
     Active Substance: MILRINONE
     Indication: HAEMODYNAMIC INSTABILITY
  4. EPINEPHRINE. [Suspect]
     Active Substance: EPINEPHRINE
     Indication: STATUS ASTHMATICUS
     Route: 065
  5. KETAMINE [Suspect]
     Active Substance: KETAMINE
     Indication: STATUS ASTHMATICUS
     Route: 065
  6. ALBUTEROL. [Concomitant]
     Active Substance: ALBUTEROL
     Indication: STATUS ASTHMATICUS
     Dosage: CONTINUOUS INFUSION
  7. NOREPINEPHRINE [Concomitant]
     Active Substance: NOREPINEPHRINE\NOREPINEPHRINE BITARTRATE
     Indication: HAEMODYNAMIC INSTABILITY
     Dosage: CONTINUOUS INFUSIONS
  8. DUONEB [Concomitant]
     Active Substance: ALBUTEROL SULFATE\IPRATROPIUM BROMIDE
     Indication: STATUS ASTHMATICUS
  9. SOLU-MEDROL [Concomitant]
     Active Substance: METHYLPREDNISOLONE SODIUM SUCCINATE
     Indication: STATUS ASTHMATICUS
  10. TERBUTALINE [Concomitant]
     Active Substance: TERBUTALINE
     Indication: STATUS ASTHMATICUS
     Dosage: CONTINUOUS

REACTIONS (7)
  - Coronary artery occlusion [Unknown]
  - Myocardial ischaemia [Unknown]
  - Diastolic hypertension [Unknown]
  - Systolic dysfunction [Unknown]
  - Electrocardiogram ST segment depression [Unknown]
  - Systolic hypertension [Unknown]
  - Left ventricular dilatation [Unknown]
